FAERS Safety Report 12079441 (Version 2)
Quarter: 2016Q1

REPORT INFORMATION
  Report Type: Spontaneous
  Country: US (occurrence: US)
  Receive Date: 20160216
  Receipt Date: 20160330
  Transmission Date: 20160526
  Serious: No
  Sender: FDA-Public Use
  Company Number: US-FRI-1000081423

PATIENT
  Sex: Female

DRUGS (5)
  1. ARMOUR THYROID [Suspect]
     Active Substance: THYROID, PORCINE
     Dates: start: 2010
  2. LEVOXYL [Suspect]
     Active Substance: LEVOTHYROXINE SODIUM
  3. THYROID C [Suspect]
     Active Substance: THYROID, UNSPECIFIED
  4. HYDROCORTISONE. [Concomitant]
     Active Substance: HYDROCORTISONE
     Indication: ADRENAL INSUFFICIENCY
  5. ARMOUR THYROID [Suspect]
     Active Substance: THYROID, PORCINE
     Indication: HYPOTHYROIDISM
     Dates: start: 200601, end: 200907

REACTIONS (32)
  - Myalgia [Unknown]
  - Abdominal distension [Unknown]
  - Dyspnoea [Unknown]
  - Back pain [Unknown]
  - Tri-iodothyronine increased [Unknown]
  - Unevaluable event [Unknown]
  - Hyperhidrosis [Recovered/Resolved]
  - Panic attack [Unknown]
  - Blood pressure decreased [Unknown]
  - Pain in extremity [Unknown]
  - Movement disorder [Unknown]
  - Condition aggravated [Unknown]
  - Drug ineffective [Unknown]
  - Headache [Unknown]
  - Alopecia [Unknown]
  - Hyperhidrosis [Unknown]
  - Peripheral swelling [Unknown]
  - Muscle spasms [Unknown]
  - Adrenal disorder [Unknown]
  - Migraine [Recovered/Resolved]
  - Hypoacusis [Unknown]
  - Bedridden [Unknown]
  - Thyroid pain [Recovered/Resolved]
  - Heart rate increased [Unknown]
  - Frustration tolerance decreased [Unknown]
  - Feeling hot [Unknown]
  - Fatigue [Unknown]
  - Sebaceous gland disorder [Unknown]
  - Weight increased [Unknown]
  - Joint swelling [Recovered/Resolved]
  - Pain [Unknown]
  - Feeling abnormal [Unknown]

NARRATIVE: CASE EVENT DATE: 200907
